FAERS Safety Report 6883457-6 (Version None)
Quarter: 2010Q3

REPORT INFORMATION
  Report Type: 
  Country: None (occurrence: None)
  Receive Date: 20100727
  Receipt Date: 20100716
  Transmission Date: 20110219
  Serious: Yes (Death)
  Sender: FDA-Public Use
  Company Number: 7011474

PATIENT
  Age: 52 Year
  Sex: Male

DRUGS (2)
  1. REBIF [Suspect]
     Indication: MULTIPLE SCLEROSIS
     Dates: end: 20090622
  2. TYSABRI [Suspect]
     Dates: start: 20090730, end: 20090730

REACTIONS (4)
  - ARRHYTHMIA [None]
  - CENTRAL NERVOUS SYSTEM INFECTION [None]
  - DISEASE PROGRESSION [None]
  - MULTIPLE SCLEROSIS [None]
